FAERS Safety Report 14242839 (Version 2)
Quarter: 2018Q1

REPORT INFORMATION
  Report Type: Spontaneous
  Country: US (occurrence: US)
  Receive Date: 20171201
  Receipt Date: 20180131
  Transmission Date: 20180508
  Serious: No
  Sender: FDA-Public Use
  Company Number: US-LEXICON PHARMACEUTICALS, INC-17-1606-01144

PATIENT
  Sex: Male

DRUGS (8)
  1. LOMOTIL [Concomitant]
     Active Substance: ATROPINE SULFATE\DIPHENOXYLATE HYDROCHLORIDE
  2. OLANZAPINE. [Concomitant]
     Active Substance: OLANZAPINE
  3. MARINOL (ALLOPURINOL) [Concomitant]
     Active Substance: ALLOPURINOL
  4. MORPHINE SULFATE. [Concomitant]
     Active Substance: MORPHINE SULFATE
  5. IR OCTREOTIDE [Concomitant]
     Route: 058
  6. TELOTRISTAT ETHYL [Suspect]
     Active Substance: TELOTRISTAT ETHYL
     Indication: CARCINOID SYNDROME
     Route: 048
     Dates: start: 20170826
  7. AFINITOR [Suspect]
     Active Substance: EVEROLIMUS
  8. POTASSIUM CITRATE ER [Concomitant]

REACTIONS (1)
  - Fatigue [Not Recovered/Not Resolved]

NARRATIVE: CASE EVENT DATE: 2017
